FAERS Safety Report 14890674 (Version 1)
Quarter: 2018Q2

REPORT INFORMATION
  Report Type: Spontaneous
  Country: US (occurrence: US)
  Receive Date: 20180514
  Receipt Date: 20180514
  Transmission Date: 20180711
  Serious: No
  Sender: FDA-Public Use
  Company Number: US-BAYER-2018-088208

PATIENT
  Age: 2 Month
  Sex: Male

DRUGS (3)
  1. CIPROFLOXACIN. [Suspect]
     Active Substance: CIPROFLOXACIN
     Indication: LEGIONELLA INFECTION
  2. AMPHOTERICIN B. [Concomitant]
     Active Substance: AMPHOTERICIN B
     Indication: FUNGAL INFECTION
     Dosage: UNK
  3. MEROPENEM. [Concomitant]
     Active Substance: MEROPENEM
     Dosage: UNK

REACTIONS (2)
  - Off label use [None]
  - Drug administered to patient of inappropriate age [None]
